FAERS Safety Report 7183726-9 (Version None)
Quarter: 2010Q4

REPORT INFORMATION
  Report Type: 
  Country: None (occurrence: None)
  Receive Date: 20101222
  Receipt Date: 20101216
  Transmission Date: 20110411
  Serious: Yes (Other)
  Sender: FDA-Public Use
  Company Number: ES-SANOFI-AVENTIS-2010SA075931

PATIENT
  Age: 46 Year
  Sex: Female

DRUGS (2)
  1. ARAVA [Suspect]
     Route: 048
     Dates: start: 20080623, end: 20100322
  2. HUMIRA [Suspect]
     Dosage: EVERY 14 DAYS
     Route: 058
     Dates: start: 20080623, end: 20100322

REACTIONS (1)
  - BREAST CANCER [None]
